FAERS Safety Report 12742717 (Version 1)
Quarter: 2016Q3

REPORT INFORMATION
  Report Type: Spontaneous
  Country: US (occurrence: US)
  Receive Date: 20160914
  Receipt Date: 20160914
  Transmission Date: 20161109
  Serious: Yes (Other)
  Sender: FDA-Public Use
  Company Number: None

PATIENT
  Sex: Female

DRUGS (1)
  1. SAIZEN [Suspect]
     Active Substance: SOMATROPIN
     Dosage: 5MG 6 DAYS/WEEK SUBCUTANEOUS
     Route: 058
     Dates: start: 20140515

REACTIONS (1)
  - Cerebrovascular accident [None]
